FAERS Safety Report 8392664-5 (Version None)
Quarter: 2012Q2

REPORT INFORMATION
  Report Type: 
  Country: None (occurrence: None)
  Receive Date: 20120529
  Receipt Date: 20120514
  Transmission Date: 20120825
  Serious: Yes (Hospitalization, Other)
  Sender: FDA-Public Use
  Company Number: US-WATSON-2012-09019

PATIENT
  Age: 79 Year
  Sex: Female

DRUGS (2)
  1. LORAZEPAM [Suspect]
     Indication: INSOMNIA
     Dosage: 0.5 MG, QHS
     Route: 065
  2. ETHANOL [Suspect]
     Indication: FEELING OF RELAXATION
     Dosage: UNK

REACTIONS (4)
  - COGNITIVE DISORDER [None]
  - ALCOHOL INTERACTION [None]
  - ALCOHOLISM [None]
  - MEMORY IMPAIRMENT [None]
